FAERS Safety Report 7724104-0 (Version None)
Quarter: 2011Q3

REPORT INFORMATION
  Report Type: 
  Country: None (occurrence: None)
  Receive Date: 20110829
  Receipt Date: 20110812
  Transmission Date: 20111222
  Serious: Yes (Other)
  Sender: FDA-Public Use
  Company Number: 2011MA011929

PATIENT
  Sex: Male

DRUGS (1)
  1. METOCLOPRAMIDE [Suspect]
     Dates: start: 20051001, end: 20101201

REACTIONS (6)
  - EXTRAPYRAMIDAL DISORDER [None]
  - EMOTIONAL DISORDER [None]
  - TARDIVE DYSKINESIA [None]
  - FAMILY STRESS [None]
  - ECONOMIC PROBLEM [None]
  - INJURY [None]
